FAERS Safety Report 19075816 (Version 3)
Quarter: 2023Q2

REPORT INFORMATION
  Report Type: Spontaneous
  Country: US (occurrence: US)
  Receive Date: 20210330
  Receipt Date: 20230408
  Transmission Date: 20230721
  Serious: Yes (Other)
  Sender: FDA-Public Use
  Company Number: US-GILEAD-2021-0523095

PATIENT
  Age: 52 Year
  Sex: Male
  Weight: 77.098 kg

DRUGS (26)
  1. VIREAD [Suspect]
     Active Substance: TENOFOVIR DISOPROXIL FUMARATE
     Indication: HIV infection
     Dosage: UNK
     Route: 048
     Dates: start: 2003
  2. TRUVADA [Suspect]
     Active Substance: EMTRICITABINE\TENOFOVIR DISOPROXIL FUMARATE
     Indication: HIV infection
     Dosage: UNK
     Route: 048
     Dates: start: 2003
  3. ATRIPLA [Suspect]
     Active Substance: EFAVIRENZ\EMTRICITABINE\TENOFOVIR DISOPROXIL FUMARATE
     Indication: HIV infection
     Dosage: UNK
     Route: 048
     Dates: start: 2003
  4. ATRIPLA [Suspect]
     Active Substance: EFAVIRENZ\EMTRICITABINE\TENOFOVIR DISOPROXIL FUMARATE
     Dosage: UNK
     Route: 048
     Dates: start: 2010, end: 20150912
  5. ATRIPLA [Suspect]
     Active Substance: EFAVIRENZ\EMTRICITABINE\TENOFOVIR DISOPROXIL FUMARATE
     Dosage: UNK
     Route: 048
     Dates: start: 200809, end: 20150912
  6. EPZICOM [Concomitant]
     Active Substance: ABACAVIR SULFATE\LAMIVUDINE
  7. ISENTRESS [Concomitant]
     Active Substance: RALTEGRAVIR POTASSIUM
  8. TRIUMEQ [Concomitant]
     Active Substance: ABACAVIR SULFATE\DOLUTEGRAVIR SODIUM\LAMIVUDINE
  9. HUMALOG [Concomitant]
     Active Substance: INSULIN LISPRO
  10. LANTUS [Concomitant]
     Active Substance: INSULIN GLARGINE
  11. OMEPRAZOLE [Concomitant]
     Active Substance: OMEPRAZOLE
  12. PRAVASTATIN [Concomitant]
     Active Substance: PRAVASTATIN
  13. ONDANSETRON [Concomitant]
     Active Substance: ONDANSETRON
  14. TESTOSTERONE [Concomitant]
     Active Substance: TESTOSTERONE
  15. TRIAMCINOLONE [Concomitant]
     Active Substance: TRIAMCINOLONE
  16. AMLODIPINE [Concomitant]
     Active Substance: AMLODIPINE BESYLATE
  17. SILDENAFIL [Concomitant]
     Active Substance: SILDENAFIL
  18. CLONAZEPAM [Concomitant]
     Active Substance: CLONAZEPAM
  19. TACROLIMUS [Concomitant]
     Active Substance: TACROLIMUS
  20. VALACYCLOVIR HYDROCHLORIDE [Concomitant]
     Active Substance: VALACYCLOVIR HYDROCHLORIDE
  21. NOVOLOG [Concomitant]
     Active Substance: INSULIN ASPART
  22. GABAPENTIN [Concomitant]
     Active Substance: GABAPENTIN
  23. FLUCONAZOLE [Concomitant]
     Active Substance: FLUCONAZOLE
  24. AZITHROMYCIN [Concomitant]
     Active Substance: AZITHROMYCIN
  25. AMOXICILLIN [Concomitant]
     Active Substance: AMOXICILLIN
  26. ZOFRAN [Concomitant]
     Active Substance: ONDANSETRON HYDROCHLORIDE

REACTIONS (8)
  - Acute kidney injury [Recovered/Resolved]
  - Emotional distress [Not Recovered/Not Resolved]
  - Anhedonia [Not Recovered/Not Resolved]
  - Anxiety [Not Recovered/Not Resolved]
  - Pain [Not Recovered/Not Resolved]
  - Proteinuria [Not Recovered/Not Resolved]
  - Sleep disorder [Unknown]
  - Pollakiuria [Unknown]

NARRATIVE: CASE EVENT DATE: 20150101
